FAERS Safety Report 4456243-4 (Version None)
Quarter: 2004Q3

REPORT INFORMATION
  Report Type: 
  Country: None (occurrence: None)
  Receive Date: 20040902
  Receipt Date: 20040622
  Transmission Date: 20050211
  Serious: No
  Sender: FDA-Public Use
  Company Number: 200323826BWH

PATIENT
  Age: 60 Year
  Sex: Male

DRUGS (7)
  1. LEVITRA [Suspect]
     Indication: ERECTILE DYSFUNCTION
     Dosage: 10 MG, PRN, ORAL
     Route: 048
     Dates: start: 20030913
  2. FLOMAX MR ^YAMANOUCHI^ [Concomitant]
  3. VIAGRA [Concomitant]
  4. LISINOPRIL [Concomitant]
  5. TRIAMTERENC [Concomitant]
  6. RED YEAST RICE [Concomitant]
  7. FLAXSEED OIL [Concomitant]

REACTIONS (4)
  - CHROMATOPSIA [None]
  - DIZZINESS [None]
  - FATIGUE [None]
  - HEART RATE DECREASED [None]
